FAERS Safety Report 10072975 (Version 1)
Quarter: 2014Q2

REPORT INFORMATION
  Report Type: Spontaneous
  Country: IN (occurrence: IN)
  Receive Date: 20140411
  Receipt Date: 20140411
  Transmission Date: 20141212
  Serious: Yes (Other)
  Sender: FDA-Public Use
  Company Number: IN-WATSON-2014-06623

PATIENT
  Age: 30 Year
  Sex: Female

DRUGS (2)
  1. HYDROXYCHLOROQUINE SULFATE (WATSON LABORATORIES) [Suspect]
     Indication: SYSTEMIC LUPUS ERYTHEMATOSUS
     Dosage: 200 MG, BID
     Route: 065
     Dates: start: 200901
  2. CALCIUM [Concomitant]
     Indication: SYSTEMIC LUPUS ERYTHEMATOSUS
     Dosage: UNKNOWN
     Route: 065

REACTIONS (4)
  - Nephrotic syndrome [Recovering/Resolving]
  - Cardiomyopathy [Recovering/Resolving]
  - Pericardial effusion [Recovering/Resolving]
  - Lipid metabolism disorder [Unknown]
